FAERS Safety Report 6130521-5 (Version None)
Quarter: 2009Q1

REPORT INFORMATION
  Report Type: 
  Country: None (occurrence: None)
  Receive Date: 20090324
  Receipt Date: 20090316
  Transmission Date: 20090719
  Serious: Yes (Other)
  Sender: FDA-Public Use
  Company Number: LB-ABBOTT-09P-093-0562717-00

PATIENT
  Age: 27 Year
  Sex: Female

DRUGS (1)
  1. DEPAKENE [Suspect]
     Indication: EPILEPSY
     Route: 048
     Dates: start: 20080901, end: 20090201

REACTIONS (2)
  - HYPOGLYCAEMIA [None]
  - WEIGHT INCREASED [None]
